FAERS Safety Report 9769497 (Version 2)
Quarter: 2013Q4

REPORT INFORMATION
  Report Type: Spontaneous
  Country: US (occurrence: US)
  Receive Date: 20131218
  Receipt Date: 20131218
  Transmission Date: 20140711
  Serious: No
  Sender: FDA-Public Use
  Company Number: US-SHIONOGI, INC-2013000218

PATIENT
  Age: 52 Year
  Sex: Female

DRUGS (9)
  1. OSPHENA [Suspect]
     Indication: VULVOVAGINAL DRYNESS
     Dosage: 60 MG, QD
     Route: 065
     Dates: start: 20130625
  2. OSPHENA [Suspect]
     Indication: OFF LABEL USE
  3. TRIAMTERENE AND HYDROCHLOROTHIAZIDE [Concomitant]
     Indication: MENIERE^S DISEASE
     Dosage: UNK
     Route: 065
     Dates: start: 2013
  4. ATENOLOL [Concomitant]
     Indication: EXTRASYSTOLES
     Dosage: UNK
     Route: 065
     Dates: start: 20130701
  5. MUCINEX [Concomitant]
     Indication: SINUS DISORDER
     Dosage: UNK
     Route: 065
     Dates: start: 20130702
  6. ESTRADIOL [Concomitant]
     Indication: HOT FLUSH
     Dosage: 2 MG, UNK
     Route: 048
     Dates: start: 2012, end: 20130624
  7. TRIPLE MAGNESIUM COMPLEX [Concomitant]
     Indication: PRODUCT USED FOR UNKNOWN INDICATION
     Dosage: 400 MG, QD
     Route: 048
  8. POTASSIUM [Concomitant]
     Indication: PRODUCT USED FOR UNKNOWN INDICATION
     Dosage: 90 MG, UNK
     Route: 065
  9. OMEPRAZOLE [Concomitant]
     Indication: GASTROOESOPHAGEAL REFLUX DISEASE
     Dosage: 20 MG, UNK
     Route: 065

REACTIONS (2)
  - Hot flush [Unknown]
  - Off label use [Unknown]
